FAERS Safety Report 10089685 (Version 1)
Quarter: 2014Q2

REPORT INFORMATION
  Report Type: Spontaneous
  Country: US (occurrence: US)
  Receive Date: 20140421
  Receipt Date: 20140421
  Transmission Date: 20141212
  Serious: No
  Sender: FDA-Public Use
  Company Number: US-PFIZER INC-2014109273

PATIENT
  Age: 91 Year
  Sex: Male
  Weight: 86.17 kg

DRUGS (1)
  1. SUTENT [Suspect]
     Indication: RENAL CANCER
     Dosage: 37 MG, DAILY
     Dates: start: 20140412

REACTIONS (1)
  - Back pain [Unknown]
